FAERS Safety Report 10657714 (Version 1)
Quarter: 2014Q4

REPORT INFORMATION
  Report Type: Spontaneous
  Country: US (occurrence: US)
  Receive Date: 20141217
  Receipt Date: 20141217
  Transmission Date: 20150529
  Serious: No
  Sender: FDA-Public Use
  Company Number: US-GLAXOSMITHKLINE-A1054758A

PATIENT

DRUGS (1)
  1. VOTRIENT [Suspect]
     Active Substance: PAZOPANIB HYDROCHLORIDE
     Indication: PRODUCT USED FOR UNKNOWN INDICATION
     Dosage: 200 MG TABLET AT UNKNOWN DOSING
     Route: 065
     Dates: start: 201310

REACTIONS (4)
  - Diarrhoea [Unknown]
  - Blood pressure increased [Unknown]
  - Weight decreased [Unknown]
  - Decreased appetite [Unknown]
